FAERS Safety Report 4267075-4 (Version None)
Quarter: 2004Q1

REPORT INFORMATION
  Report Type: 
  Country: None (occurrence: None)
  Receive Date: 20040107
  Receipt Date: 20031230
  Transmission Date: 20041129
  Serious: Yes (Death)
  Sender: FDA-Public Use
  Company Number: 163-20785-03110204

PATIENT
  Age: 58 Year
  Sex: Male

DRUGS (2)
  1. THALOMID [Suspect]
     Indication: MALIGNANT MELANOMA
     Dosage: 100 MG, DAILY, ORAL
     Route: 048
     Dates: start: 20030818, end: 20030919
  2. TEMOZOLOMIDE (TEMOZOLOMIDE) [Concomitant]

REACTIONS (2)
  - MALIGNANT NEOPLASM PROGRESSION [None]
  - METASTATIC MALIGNANT MELANOMA [None]
